FAERS Safety Report 10958104 (Version 1)
Quarter: 2015Q1

REPORT INFORMATION
  Report Type: Report from Study
  Country: JP (occurrence: JP)
  Receive Date: 20150326
  Receipt Date: 20150326
  Transmission Date: 20150721
  Serious: Yes (Other)
  Sender: FDA-Public Use
  Company Number: JP-MERCK-1503JPN012576

PATIENT
  Age: 70 Year
  Sex: Female
  Weight: 48 kg

DRUGS (4)
  1. SIMEPREVIR [Suspect]
     Active Substance: SIMEPREVIR
     Indication: CHRONIC HEPATITIS C
     Dosage: 100 MG, QD
     Route: 048
     Dates: start: 20140711, end: 20141001
  2. RIBAVIRIN. [Suspect]
     Active Substance: RIBAVIRIN
     Indication: CHRONIC HEPATITIS C
     Dosage: 600 MG, QD
     Route: 048
     Dates: start: 20140711
  3. PEGASYS [Suspect]
     Active Substance: PEGINTERFERON ALFA-2A
     Indication: CHRONIC HEPATITIS C
     Dosage: 180 MICROGRAM, QW
     Route: 058
     Dates: start: 20140711
  4. PLETAAL [Concomitant]
     Active Substance: CILOSTAZOL
     Dosage: 50 MG, QD
     Route: 048

REACTIONS (2)
  - Anaemia [Not Recovered/Not Resolved]
  - White blood cell count [Not Recovered/Not Resolved]

NARRATIVE: CASE EVENT DATE: 20140821
